FAERS Safety Report 11142713 (Version 1)
Quarter: 2015Q2

REPORT INFORMATION
  Report Type: Spontaneous
  Country: None (occurrence: None)
  Receive Date: 20150526
  Receipt Date: 20150526
  Transmission Date: 20150821
  Serious: Yes (Other)
  Sender: FDA-Public Use
  Company Number: None

PATIENT
  Age: 4 Year
  Sex: Female
  Weight: 16 kg

DRUGS (1)
  1. AMOXICILLIN (AMOXICILLIN) [Suspect]
     Active Substance: AMOXICILLIN
     Indication: EAR INFECTION
     Dosage: THREE TIMES DAILY TAKEN BY MOUTH
     Route: 048
     Dates: start: 20150517, end: 20150519

REACTIONS (5)
  - Pain [None]
  - Screaming [None]
  - Vomiting [None]
  - Diarrhoea [None]
  - Hypersensitivity [None]

NARRATIVE: CASE EVENT DATE: 20150517
